FAERS Safety Report 6283964-3 (Version None)
Quarter: 2009Q3

REPORT INFORMATION
  Report Type: 
  Country: None (occurrence: None)
  Receive Date: 20090722
  Receipt Date: 20090713
  Transmission Date: 20100115
  Serious: Yes (Hospitalization, Other)
  Sender: FDA-Public Use
  Company Number: 2009SP015333

PATIENT
  Age: 81 Year
  Sex: Female

DRUGS (3)
  1. LORATADINE [Suspect]
     Indication: PRURITUS
     Dosage: 3 DF; QD
  2. RISPERIDONE [Concomitant]
  3. VALPROATE SODIUM [Concomitant]

REACTIONS (4)
  - CARDIAC ARREST [None]
  - CHEST PAIN [None]
  - DIZZINESS [None]
  - OVERDOSE [None]
